FAERS Safety Report 10330710 (Version 1)
Quarter: 2014Q3

REPORT INFORMATION
  Report Type: Spontaneous
  Country: US (occurrence: None)
  Receive Date: 20140718
  Receipt Date: 20140718
  Transmission Date: 20150326
  Serious: No
  Sender: FDA-Public Use
  Company Number: None

PATIENT
  Age: 65 Year
  Sex: Female
  Weight: 72.58 kg

DRUGS (1)
  1. IMODIUM [Suspect]
     Active Substance: LOPERAMIDE HYDROCHLORIDE
     Indication: DIARRHOEA
     Dosage: OVER THE COUNTER TOOK 1 TSP; ONCE DAILY
     Route: 048
     Dates: start: 20140712, end: 20140716

REACTIONS (2)
  - Oesophageal pain [None]
  - Chest pain [None]

NARRATIVE: CASE EVENT DATE: 20140712
